FAERS Safety Report 5015556-8 (Version None)
Quarter: 2006Q2

REPORT INFORMATION
  Report Type: 
  Country: None (occurrence: None)
  Receive Date: 20060601
  Receipt Date: 20060524
  Transmission Date: 20061013
  Serious: Yes (Hospitalization)
  Sender: FDA-Public Use
  Company Number: CA-AVENTIS-200615590GDDC

PATIENT
  Sex: Female

DRUGS (1)
  1. FLAGYSTATIN [Suspect]
     Dosage: DOSE: 1 OVULE TWICE DAILY
     Route: 067
     Dates: start: 20060520, end: 20060523

REACTIONS (4)
  - ABDOMINAL PAIN [None]
  - DIZZINESS [None]
  - NAUSEA [None]
  - VAGINAL HAEMORRHAGE [None]
